FAERS Safety Report 9997292 (Version 1)
Quarter: 2014Q1

REPORT INFORMATION
  Report Type: Spontaneous
  Country: FR (occurrence: FR)
  Receive Date: 20140311
  Receipt Date: 20140311
  Transmission Date: 20141002
  Serious: Yes (Life-Threatening, Hospitalization)
  Sender: FDA-Public Use
  Company Number: FR-TEVA-465874ISR

PATIENT
  Age: 60 Year
  Sex: Male

DRUGS (6)
  1. DOXORUBICINE [Suspect]
     Indication: HODGKIN^S DISEASE STAGE III
     Route: 041
     Dates: start: 19981229, end: 19990302
  2. CARYOLYSINE 10MG [Suspect]
     Indication: HODGKIN^S DISEASE STAGE III
     Dosage: 9 MILLIGRAM DAILY;
     Route: 003
     Dates: start: 19981229, end: 19990302
  3. VELBE 10MG [Suspect]
     Indication: HODGKIN^S DISEASE STAGE III
     Route: 041
     Dates: start: 19981229, end: 19990302
  4. BLEOMYCINE BELLON 15MG [Suspect]
     Indication: HODGKIN^S DISEASE STAGE III
     Route: 041
     Dates: start: 19990105, end: 19990309
  5. ETOPOSIDE MERCK 10MG [Suspect]
     Indication: HODGKIN^S DISEASE STAGE III
     Dosage: 100 MILLIGRAM DAILY;
     Route: 041
     Dates: start: 19990119, end: 19990210
  6. ELDISINE 10MG [Suspect]
     Indication: HODGKIN^S DISEASE STAGE III
     Route: 041
     Dates: start: 19990209, end: 19990309

REACTIONS (3)
  - Acute myeloid leukaemia [Recovering/Resolving]
  - Myelodysplastic syndrome [Unknown]
  - Pancytopenia [Unknown]
